FAERS Safety Report 6794513-5 (Version None)
Quarter: 2010Q2

REPORT INFORMATION
  Report Type: 
  Country: None (occurrence: None)
  Receive Date: 20100625
  Receipt Date: 20100624
  Transmission Date: 20101027
  Serious: Yes (Death, Hospitalization)
  Sender: FDA-Public Use
  Company Number: GB-PFIZER INC-2009240666

PATIENT
  Age: 74 Year
  Sex: Female
  Weight: 49.2 kg

DRUGS (1)
  1. SUTENT [Suspect]
     Indication: RENAL CELL CARCINOMA
     Dosage: 37.5 MG, 1X/DAY
     Route: 048
     Dates: start: 20090528, end: 20090713

REACTIONS (5)
  - ANAEMIA [None]
  - BRONCHOPNEUMONIA [None]
  - CIRCULATORY COLLAPSE [None]
  - PLATELET COUNT DECREASED [None]
  - VAGINAL HAEMORRHAGE [None]
